FAERS Safety Report 10143323 (Version 1)
Quarter: 2014Q2

REPORT INFORMATION
  Report Type: Spontaneous
  Country: AR (occurrence: None)
  Receive Date: 20140428
  Receipt Date: 20140428
  Transmission Date: 20141212
  Serious: Yes (Hospitalization)
  Sender: FDA-Public Use
  Company Number: VAL_03091_2014

PATIENT
  Age: 44 Year
  Sex: Female

DRUGS (1)
  1. METHYLERGOMETRINE MALEATE [Suspect]
     Indication: ABORTION SPONTANEOUS
     Dosage: DF
     Route: 048
     Dates: start: 2002

REACTIONS (2)
  - Reproductive tract disorder [None]
  - Thrombosis [None]
